FAERS Safety Report 18104143 (Version 1)
Quarter: 2020Q3

REPORT INFORMATION
  Report Type: Spontaneous
  Country: US (occurrence: US)
  Receive Date: 20200802
  Receipt Date: 20200802
  Transmission Date: 20201103
  Serious: Yes (Life-Threatening, Hospitalization, Disabling)
  Sender: FDA-Public Use
  Company Number: None

PATIENT
  Age: 53 Year
  Sex: Female
  Weight: 48.15 kg

DRUGS (4)
  1. IBUPROFEN. [Concomitant]
     Active Substance: IBUPROFEN
  2. FECAL MICROBIAL TRANSPLANT [Suspect]
     Active Substance: FECAL MICROBIOTA
     Indication: CLOSTRIDIUM DIFFICILE INFECTION
     Dosage: ?          OTHER STRENGTH:1;QUANTITY:1 1;OTHER FREQUENCY:1;?
     Route: 054
     Dates: start: 20200130, end: 20200130
  3. DILAUDID [Concomitant]
     Active Substance: HYDROMORPHONE HYDROCHLORIDE
  4. PREDNISONE. [Concomitant]
     Active Substance: PREDNISONE

REACTIONS (12)
  - Nausea [None]
  - Anal incontinence [None]
  - Enterocolitis haemorrhagic [None]
  - Malnutrition [None]
  - Diarrhoea haemorrhagic [None]
  - Red blood cell count decreased [None]
  - Myocardial infarction [None]
  - Abdominal pain upper [None]
  - Diarrhoea [None]
  - Eructation [None]
  - White blood cell count increased [None]
  - Nephropathy [None]

NARRATIVE: CASE EVENT DATE: 20200130
